FAERS Safety Report 7705868-9 (Version None)
Quarter: 2011Q3

REPORT INFORMATION
  Report Type: 
  Country: None (occurrence: None)
  Receive Date: 20110824
  Receipt Date: 20110811
  Transmission Date: 20111222
  Serious: Yes (Hospitalization)
  Sender: FDA-Public Use
  Company Number: BE-SANOFI-AVENTIS-2011SA051514

PATIENT

DRUGS (6)
  1. DRONEDARONE HCL [Suspect]
     Indication: ATRIAL FIBRILLATION
     Route: 048
  2. BISOPROLOL FUMARATE [Concomitant]
  3. ZOCOR [Concomitant]
  4. WARFARIN SODIUM [Concomitant]
  5. PERINDOPRIL [Concomitant]
  6. ASAFLOW [Concomitant]

REACTIONS (1)
  - VERTIGO [None]
